FAERS Safety Report 16976027 (Version 1)
Quarter: 2019Q4

REPORT INFORMATION
  Report Type: Spontaneous
  Country: CA (occurrence: CA)
  Receive Date: 20191030
  Receipt Date: 20191030
  Transmission Date: 20200122
  Serious: Yes (Other)
  Sender: FDA-Public Use
  Company Number: CA-ANIPHARMA-2019-CA-001573

PATIENT
  Age: 72 Year
  Sex: Female
  Weight: 50 kg

DRUGS (4)
  1. EXEMESTANE. [Concomitant]
     Active Substance: EXEMESTANE
     Dosage: 25 MG DAILY
     Route: 065
  2. EVEROLIMUS. [Concomitant]
     Active Substance: EVEROLIMUS
     Dosage: 5 MG DAILY / 10 MG DAILY
     Route: 065
     Dates: start: 201711
  3. ARIMIDEX [Suspect]
     Active Substance: ANASTROZOLE
     Indication: PRODUCT USED FOR UNKNOWN INDICATION
     Dosage: UNKNOWN
     Route: 048
     Dates: end: 201711
  4. IBRANCE [Concomitant]
     Active Substance: PALBOCICLIB
     Dosage: UNKNOWN
     Route: 065

REACTIONS (5)
  - Metastases to liver [Unknown]
  - Renal impairment [Unknown]
  - Off label use [Unknown]
  - Malignant neoplasm progression [Unknown]
  - Pericardial effusion [Unknown]
